FAERS Safety Report 10218630 (Version 1)
Quarter: 2014Q2

REPORT INFORMATION
  Report Type: Spontaneous
  Country: US (occurrence: US)
  Receive Date: 20140605
  Receipt Date: 20140605
  Transmission Date: 20141212
  Serious: No
  Sender: FDA-Public Use
  Company Number: US-PFIZER INC-2014152572

PATIENT
  Age: 56 Year
  Sex: Female

DRUGS (9)
  1. CELEBREX [Suspect]
     Dosage: UNK
  2. CELECOXIB [Suspect]
     Dosage: UNK
  3. DETROL [Suspect]
     Dosage: UNK
  4. TOLTERODINE TARTRATE [Suspect]
     Dosage: UNK
  5. MELOXICAM [Suspect]
     Dosage: UNK
  6. DEMEROL [Suspect]
     Dosage: UNK
  7. MEPERIDINE [Suspect]
     Dosage: UNK
  8. VESICARE [Suspect]
     Dosage: UNK
  9. SOLIFENACIN [Suspect]
     Dosage: UNK

REACTIONS (1)
  - Drug hypersensitivity [Unknown]
